FAERS Safety Report 9009545 (Version 3)
Quarter: 2013Q1

REPORT INFORMATION
  Report Type: Spontaneous
  Country: US (occurrence: US)
  Receive Date: 20130112
  Receipt Date: 20130120
  Transmission Date: 20140127
  Serious: Yes (Death, Hospitalization)
  Sender: FDA-Public Use
  Company Number: US-009507513-1301USA002829

PATIENT
  Age: 53 Year
  Sex: Male

DRUGS (6)
  1. TEMODAR [Suspect]
     Dosage: 100 MG, TID FOR 5 DAYS EACH MONTH
     Route: 048
     Dates: start: 20121227, end: 20121231
  2. DECADRON [Concomitant]
  3. HYDROCODONE [Concomitant]
     Indication: PAIN
  4. VALIUM [Concomitant]
     Indication: ANXIETY
  5. PEPCID [Concomitant]
  6. COLACE [Concomitant]

REACTIONS (3)
  - Death [Fatal]
  - Renal failure acute [Recovering/Resolving]
  - Hepatic enzyme increased [Recovering/Resolving]
